FAERS Safety Report 15670503 (Version 5)
Quarter: 2019Q4

REPORT INFORMATION
  Report Type: Spontaneous
  Country: CO (occurrence: CO)
  Receive Date: 20181129
  Receipt Date: 20191011
  Transmission Date: 20200122
  Serious: Yes (Hospitalization, Other)
  Sender: FDA-Public Use
  Company Number: CO-BIOMARINAP-CO-2018-119045

PATIENT

DRUGS (1)
  1. NAGLAZYME [Suspect]
     Active Substance: GALSULFASE
     Indication: PRODUCT USED FOR UNKNOWN INDICATION
     Dosage: 30 MILLIGRAM
     Route: 042
     Dates: start: 20080112

REACTIONS (8)
  - Spinal pain [Unknown]
  - Dyskinesia [Unknown]
  - Pneumonia [Unknown]
  - Atelectasis [Unknown]
  - Drug ineffective [Unknown]
  - Insomnia [Unknown]
  - Lung consolidation [Unknown]
  - Spinal decompression [Recovering/Resolving]

NARRATIVE: CASE EVENT DATE: 20181019
